FAERS Safety Report 8745702 (Version 4)
Quarter: 2013Q1

REPORT INFORMATION
  Report Type: Spontaneous
  Country: US (occurrence: US)
  Receive Date: 20120827
  Receipt Date: 20130102
  Transmission Date: 20140127
  Serious: No
  Sender: FDA-Public Use
  Company Number: US-009507513-1208USA003448

PATIENT
  Age: 54 None
  Sex: Male
  Weight: 107.94 kg

DRUGS (3)
  1. RIBAVIRIN [Suspect]
     Indication: HEPATITIS C
     Dosage: UNK
     Dates: start: 20120715
  2. VICTRELIS [Suspect]
     Indication: HEPATITIS C
     Dosage: UNK
     Dates: start: 20120809
  3. PEGASYS [Suspect]
     Indication: HEPATITIS C
     Dosage: UNK
     Dates: start: 20120715

REACTIONS (12)
  - Pruritus [Unknown]
  - Feeling hot [Unknown]
  - Nasopharyngitis [Unknown]
  - Influenza like illness [Recovered/Resolved]
  - Myalgia [Unknown]
  - Bone pain [Unknown]
  - Rash [Unknown]
  - Pruritus [Unknown]
  - Leukopenia [Unknown]
  - Dysgeusia [Unknown]
  - Metabolic disorder [Unknown]
  - Pruritus [Unknown]
